FAERS Safety Report 7229928-4 (Version None)
Quarter: 2011Q1

REPORT INFORMATION
  Report Type: 
  Country: None (occurrence: None)
  Receive Date: 20110117
  Receipt Date: 20110113
  Transmission Date: 20110831
  Serious: Yes (Other)
  Sender: FDA-Public Use
  Company Number: US-PFIZER INC-2011009372

PATIENT
  Sex: Female
  Weight: 62.6 kg

DRUGS (8)
  1. PREMARIN [Suspect]
     Indication: OFF LABEL USE
     Dosage: UNK, DAILY
     Route: 067
     Dates: start: 20110111
  2. PREMARIN [Suspect]
     Indication: CYSTITIS
  3. WARFARIN [Concomitant]
     Dosage: UNK, DAILY
  4. FUROSEMIDE [Concomitant]
     Indication: HYPERTENSION
     Dosage: 20 MG, UNK
  5. PREMARIN [Suspect]
     Indication: BLADDER PROLAPSE
  6. TOPROL-XL [Suspect]
     Indication: HYPERTENSION
     Dosage: 0.25 MG, UNK
  7. LANOXIN [Concomitant]
     Indication: HYPERTENSION
     Dosage: 0.25 MG, UNK
  8. AVAPRO [Concomitant]
     Indication: HYPERTENSION
     Dosage: 150 MG, 3X/DAY

REACTIONS (7)
  - CHILLS [None]
  - FLUSHING [None]
  - DIZZINESS [None]
  - BREAST TENDERNESS [None]
  - VASCULAR GRAFT [None]
  - HEART RATE INCREASED [None]
  - VULVOVAGINAL BURNING SENSATION [None]
